FAERS Safety Report 13413666 (Version 3)
Quarter: 2019Q4

REPORT INFORMATION
  Report Type: Spontaneous
  Country: US (occurrence: US)
  Receive Date: 20170406
  Receipt Date: 20191213
  Transmission Date: 20200122
  Serious: No
  Sender: FDA-Public Use
  Company Number: US-JNJFOC-20170311631

PATIENT
  Sex: Male

DRUGS (6)
  1. RISPERDAL [Suspect]
     Active Substance: RISPERIDONE
     Indication: SCHIZOPHRENIA
     Route: 048
     Dates: start: 20040211, end: 20070201
  2. RISPERDAL [Suspect]
     Active Substance: RISPERIDONE
     Indication: PSYCHOTIC DISORDER
  3. RISPERIDONE. [Suspect]
     Active Substance: RISPERIDONE
     Indication: PARANOIA
     Route: 048
     Dates: start: 20040220, end: 2004
  4. RISPERDAL [Suspect]
     Active Substance: RISPERIDONE
     Indication: PARANOIA
     Dosage: IN VARYING DOSES OF 1 MG TO 3 MG
     Route: 048
     Dates: start: 20040304, end: 20080721
  5. RISPERIDONE. [Suspect]
     Active Substance: RISPERIDONE
     Indication: SCHIZOPHRENIA
  6. RISPERIDONE. [Suspect]
     Active Substance: RISPERIDONE
     Indication: PSYCHOTIC DISORDER

REACTIONS (5)
  - Malaise [Unknown]
  - Vision blurred [Unknown]
  - Emotional distress [Unknown]
  - Gynaecomastia [Unknown]
  - Dizziness [Unknown]

NARRATIVE: CASE EVENT DATE: 2009
